FAERS Safety Report 8574408-7 (Version None)
Quarter: 2012Q3

REPORT INFORMATION
  Report Type: 
  Country: None (occurrence: None)
  Receive Date: 20120806
  Receipt Date: 20120725
  Transmission Date: 20120928
  Serious: Yes (Other)
  Sender: FDA-Public Use
  Company Number: US-PFIZER INC-2012176173

PATIENT
  Age: 37 Year
  Sex: Female
  Weight: 54 kg

DRUGS (10)
  1. NORTRIPTYLINE HCL [Suspect]
     Indication: NERVE INJURY
     Dosage: UNK
     Dates: start: 20050601, end: 20060101
  2. GABAPENTIN [Suspect]
     Indication: NERVE INJURY
     Dosage: UNK
     Route: 048
     Dates: start: 20061101, end: 20061101
  3. GABAPENTIN [Suspect]
     Indication: NEURALGIA
  4. GABAPENTIN [Suspect]
  5. GABAPENTIN [Suspect]
  6. NORTRIPTYLINE HCL [Suspect]
     Indication: NEURALGIA
  7. FLEXERIL [Concomitant]
     Indication: ACCIDENT AT WORK
     Dosage: UNK
     Dates: start: 20050601
  8. PERCOCET [Concomitant]
     Indication: ACCIDENT AT WORK
     Dosage: UNK
     Dates: start: 20050601
  9. LIPITOR [Concomitant]
     Indication: BLOOD CHOLESTEROL INCREASED
     Dosage: UNK
  10. SOMA [Concomitant]
     Indication: ACCIDENT AT WORK
     Dosage: UNK
     Dates: start: 20050601

REACTIONS (18)
  - DYSPEPSIA [None]
  - HERPES ZOSTER [None]
  - WEIGHT INCREASED [None]
  - STEVENS-JOHNSON SYNDROME [None]
  - HEADACHE [None]
  - DRUG INEFFECTIVE [None]
  - PAIN [None]
  - HAEMATOCHEZIA [None]
  - LOSS OF CONSCIOUSNESS [None]
  - ASTHENIA [None]
  - ABDOMINAL MASS [None]
  - BOWEL MOVEMENT IRREGULARITY [None]
  - DIZZINESS [None]
  - ABDOMINAL PAIN [None]
  - SKIN EXFOLIATION [None]
  - WOUND [None]
  - ONYCHOCLASIS [None]
  - SYNCOPE [None]
